FAERS Safety Report 6688581-9 (Version None)
Quarter: 2010Q2

REPORT INFORMATION
  Report Type: 
  Country: None (occurrence: None)
  Receive Date: 20100420
  Receipt Date: 20100408
  Transmission Date: 20101027
  Serious: Yes (Other)
  Sender: FDA-Public Use
  Company Number: CN-PFIZER INC-2010044222

PATIENT
  Age: 35 Year
  Sex: Female

DRUGS (1)
  1. ZELDOX [Suspect]
     Indication: SCHIZOPHRENIA
     Dosage: 80 MG PER DAY
     Route: 048
     Dates: start: 20100210, end: 20100406

REACTIONS (5)
  - AKATHISIA [None]
  - CHEST DISCOMFORT [None]
  - DYSKINESIA [None]
  - TONGUE DISORDER [None]
  - TRISMUS [None]
